FAERS Safety Report 4380587-8 (Version None)
Quarter: 2004Q2

REPORT INFORMATION
  Report Type: 
  Country: None (occurrence: None)
  Receive Date: 20040610
  Receipt Date: 20040213
  Transmission Date: 20050107
  Serious: Yes (Hospitalization)
  Sender: FDA-Public Use
  Company Number: A03200400448

PATIENT
  Age: 61 Year
  Sex: Female
  Weight: 106.5953 kg

DRUGS (4)
  1. ELOXATIN [Suspect]
     Indication: COLON CANCER METASTATIC
     Dosage: 97.5 MG/M2  Q3W - INTRAVENOUS NOS
     Route: 042
     Dates: start: 20040210, end: 20040210
  2. CAPECITABINE [Concomitant]
  3. ONDANSETRON HCL [Concomitant]
  4. DEXAMETHASONE TAB [Concomitant]

REACTIONS (6)
  - BLOOD PRESSURE INCREASED [None]
  - COUGH [None]
  - DYSPNOEA [None]
  - FEELING COLD [None]
  - HEART RATE INCREASED [None]
  - TREMOR [None]
